FAERS Safety Report 15611843 (Version 2)
Quarter: 2018Q4

REPORT INFORMATION
  Report Type: Spontaneous
  Country: US (occurrence: US)
  Receive Date: 20181113
  Receipt Date: 20181224
  Transmission Date: 20190205
  Serious: Yes (Hospitalization, Other)
  Sender: FDA-Public Use
  Company Number: US-GLAXOSMITHKLINE-US2018201216

PATIENT
  Age: 69 Year
  Sex: Male

DRUGS (1)
  1. BREO ELLIPTA [Suspect]
     Active Substance: FLUTICASONE FUROATE\VILANTEROL TRIFENATATE
     Indication: ASTHMA
     Dosage: 1 PUFF(S), QD
     Dates: start: 201610

REACTIONS (6)
  - Drug ineffective [Unknown]
  - Wrong technique in device usage process [Unknown]
  - Therapeutic response increased [Unknown]
  - Cholecystectomy [Unknown]
  - Device effect variable [Unknown]
  - Drug effect variable [Unknown]

NARRATIVE: CASE EVENT DATE: 20180901
